FAERS Safety Report 8257738 (Version 2)
Quarter: 2012Q4

REPORT INFORMATION
  Report Type: 
  Country: US (occurrence: US)
  Receive Date: 20111121
  Receipt Date: 20120926
  Transmission Date: 20130627
  Serious: Yes (Other)
  Sender: FDA-Public Use
  Company Number: US-US-EMD SERONO, INC.-7096367

PATIENT
  Sex: Female

DRUGS (6)
  1. REBIF [Suspect]
     Indication: MULTIPLE SCLEROSIS
     Dates: end: 2008
  2. REBIF [Suspect]
  3. REBIF [Suspect]
     Dates: end: 2010
  4. REBIF [Suspect]
     Route: 058
     Dates: start: 20111025, end: 201202
  5. TYLENOL [Concomitant]
     Indication: PREMEDICATION
  6. IBUPROFEN [Concomitant]
     Indication: PREMEDICATION

REACTIONS (2)
  - Headache [Unknown]
  - Asthenia [Unknown]
